FAERS Safety Report 5874554-2 (Version None)
Quarter: 2008Q3

REPORT INFORMATION
  Report Type: 
  Country: None (occurrence: None)
  Receive Date: 20080909
  Receipt Date: 20080902
  Transmission Date: 20090109
  Serious: Yes (Other)
  Sender: FDA-Public Use
  Company Number: PHHY2008BR19904

PATIENT
  Sex: Male

DRUGS (2)
  1. TEGRETOL [Suspect]
     Indication: EPILEPSY
     Dosage: 1 DF, TID
     Route: 048
  2. PHENOBARBITAL TAB [Concomitant]
     Indication: EPILEPSY
     Dosage: 1 DF, DAILY
     Route: 048

REACTIONS (4)
  - DRUG ADMINISTRATION ERROR [None]
  - EYE PRURITUS [None]
  - SWELLING FACE [None]
  - VISION BLURRED [None]
